FAERS Safety Report 24663590 (Version 1)
Quarter: 2024Q4

REPORT INFORMATION
  Report Type: Spontaneous
  Country: US (occurrence: US)
  Receive Date: 20241126
  Receipt Date: 20241126
  Transmission Date: 20250115
  Serious: No
  Sender: ABBVIE
  Company Number: US-ABBVIE-6010284

PATIENT

DRUGS (1)
  1. RISANKIZUMAB [Suspect]
     Active Substance: RISANKIZUMAB
     Indication: Psoriasis
     Route: 058
     Dates: start: 20241108

REACTIONS (5)
  - Pain [Unknown]
  - Diarrhoea [Unknown]
  - Arthropathy [Unknown]
  - Mobility decreased [Unknown]
  - Back disorder [Unknown]

NARRATIVE: CASE EVENT DATE: 20241101
